FAERS Safety Report 4335760-1 (Version None)
Quarter: 2004Q2

REPORT INFORMATION
  Report Type: 
  Country: None (occurrence: None)
  Receive Date: 20040409
  Receipt Date: 20040105
  Transmission Date: 20050107
  Serious: Yes (Hospitalization, Other)
  Sender: FDA-Public Use
  Company Number: DE-BRISTOL-MYERS SQUIBB COMPANY-12469441

PATIENT
  Age: 65 Year
  Sex: Male
  Weight: 58 kg

DRUGS (4)
  1. CETUXIMAB [Suspect]
     Indication: COLON CANCER
     Dosage: INITIAL THERAPY DATE: 22-DEC-2003.  NO. OF INFUSIONS TO DATE: 2
     Route: 042
     Dates: start: 20031222, end: 20040119
  2. OXALIPLATIN [Suspect]
     Indication: COLON CANCER
     Dosage: NO. OF INFUSIONS TO DATE: 2
     Route: 042
     Dates: start: 20031222, end: 20040119
  3. FLUOROURACIL [Suspect]
     Indication: COLON CANCER
     Dosage: NO. OF INFUSIONS TO DATE: 2/ DOSE REDUCED TO 1500 MG/M2.
     Route: 042
     Dates: start: 20031222, end: 20040119
  4. LEUCOVORIN CALCIUM [Suspect]
     Indication: COLON CANCER
     Dosage: NO. OF INFUSIONS TO DATE: 2.
     Route: 042
     Dates: start: 20031222, end: 20040119

REACTIONS (4)
  - CLOSTRIDIAL INFECTION [None]
  - DEHYDRATION [None]
  - DIARRHOEA [None]
  - MUCOSAL INFLAMMATION [None]
